FAERS Safety Report 4874519-3 (Version None)
Quarter: 2006Q1

REPORT INFORMATION
  Report Type: 
  Country: None (occurrence: None)
  Receive Date: 20060104
  Receipt Date: 20060104
  Transmission Date: 20060701
  Serious: Yes (Other)
  Sender: FDA-Public Use
  Company Number: None

PATIENT
  Age: 38 Year
  Sex: Female
  Weight: 65.7716 kg

DRUGS (3)
  1. EFFEXOR [Suspect]
     Indication: MAJOR DEPRESSION
     Dosage: 225 MG OD   PO
     Route: 048
     Dates: start: 19950601, end: 19970101
  2. ZOLOFT [Concomitant]
  3. CELEXA [Concomitant]

REACTIONS (3)
  - ABNORMAL BEHAVIOUR [None]
  - HOMICIDE [None]
  - MANIA [None]
